FAERS Safety Report 11642253 (Version 2)
Quarter: 2015Q4

REPORT INFORMATION
  Report Type: Spontaneous
  Country: US (occurrence: US)
  Receive Date: 20151019
  Receipt Date: 20151203
  Transmission Date: 20160304
  Serious: No
  Sender: FDA-Public Use
  Company Number: US-PFIZER INC-2015347459

PATIENT
  Age: 71 Year
  Sex: Female

DRUGS (1)
  1. CELEBREX [Suspect]
     Active Substance: CELECOXIB
     Indication: OSTEOARTHRITIS
     Dosage: 200 MG, 2X/DAY, ONCE IN THE MORNING, ONCE AT NIGHT
     Route: 048
     Dates: start: 2003, end: 20151003

REACTIONS (3)
  - Pain [Unknown]
  - Gastrooesophageal reflux disease [Unknown]
  - Swelling [Unknown]

NARRATIVE: CASE EVENT DATE: 2013
